FAERS Safety Report 6954914-9 (Version None)
Quarter: 2010Q3

REPORT INFORMATION
  Report Type: 
  Country: None (occurrence: None)
  Receive Date: 20100830
  Receipt Date: 20100824
  Transmission Date: 20110219
  Serious: Yes (Life-Threatening)
  Sender: FDA-Public Use
  Company Number: IN-ASTRAZENECA-2010SE39942

PATIENT
  Age: 52 Year
  Sex: Male

DRUGS (1)
  1. BUPIVACAINE HCL [Suspect]
     Route: 050

REACTIONS (5)
  - APNOEA [None]
  - BLOOD PRESSURE DECREASED [None]
  - DELAYED RECOVERY FROM ANAESTHESIA [None]
  - PUPIL FIXED [None]
  - RESPIRATORY DEPRESSION [None]
